FAERS Safety Report 19804471 (Version 1)
Quarter: 2021Q3

REPORT INFORMATION
  Report Type: Spontaneous
  Country: US (occurrence: US)
  Receive Date: 20210908
  Receipt Date: 20210908
  Transmission Date: 20211014
  Serious: No
  Sender: FDA-Public Use
  Company Number: US-FARMAPROD-202106-0979

PATIENT
  Sex: Female

DRUGS (3)
  1. OXERVATE [Suspect]
     Active Substance: CENEGERMIN-BKBJ
     Indication: NEUROTROPHIC KERATOPATHY
     Route: 047
     Dates: start: 20210610
  2. SERUM TEARS [Concomitant]
  3. MINERAL OIL. [Concomitant]
     Active Substance: MINERAL OIL
     Dosage: EYE LUBRICANT EVERY FOUR TO SIX TIMES DAILY

REACTIONS (1)
  - Incorrect drug administration rate [Unknown]
